FAERS Safety Report 14182939 (Version 1)
Quarter: 2017Q4

REPORT INFORMATION
  Report Type: Spontaneous
  Country: CL (occurrence: CL)
  Receive Date: 20171113
  Receipt Date: 20171113
  Transmission Date: 20180321
  Serious: Yes (Hospitalization)
  Sender: FDA-Public Use
  Company Number: CL-VIIV HEALTHCARE LIMITED-CL2017GSK173612

PATIENT
  Age: 45 Year
  Sex: Male

DRUGS (1)
  1. TRIUMEQ [Suspect]
     Active Substance: ABACAVIR SULFATE\DOLUTEGRAVIR SODIUM\LAMIVUDINE
     Indication: HIV TEST POSITIVE
     Dosage: 1 DF, QD, TABLETS PER DAY
     Dates: start: 2017

REACTIONS (1)
  - Livedo reticularis [Not Recovered/Not Resolved]

NARRATIVE: CASE EVENT DATE: 2017
